FAERS Safety Report 5575438-X (Version None)
Quarter: 2007Q4

REPORT INFORMATION
  Report Type: 
  Country: None (occurrence: None)
  Receive Date: 20071227
  Receipt Date: 20071210
  Transmission Date: 20080405
  Serious: No
  Sender: FDA-Public Use
  Company Number: US-BOEHRINGER INGELHEIM PHARMACEUTICALS, INC.-2007-BP-25511VE

PATIENT

DRUGS (1)
  1. ACETYLCYSTEINE SOLUTION USP, 20% (STERILE) [Suspect]
     Route: 065
     Dates: start: 20070101

REACTIONS (2)
  - NAIL DISORDER [None]
  - OPEN WOUND [None]
